FAERS Safety Report 7950633-0 (Version None)
Quarter: 2011Q4

REPORT INFORMATION
  Report Type: 
  Country: None (occurrence: None)
  Receive Date: 20111130
  Receipt Date: 20111118
  Transmission Date: 20120403
  Serious: Yes (Hospitalization, Other)
  Sender: FDA-Public Use
  Company Number: US-ELI_LILLY_AND_COMPANY-US201105002065

PATIENT
  Age: 52 Year
  Sex: Female

DRUGS (10)
  1. CELEBREX [Concomitant]
  2. CIMZIA [Concomitant]
  3. PREDNISONE TAB [Concomitant]
  4. FORTEO [Suspect]
     Indication: OSTEOPOROSIS
     Dosage: 20 UG, QD
     Route: 058
     Dates: start: 20110411
  5. PLAQUENIL [Concomitant]
  6. SKELAXIN [Concomitant]
  7. HYDROCODONE [Concomitant]
  8. CALCIUM +VIT D [Concomitant]
  9. LYRICA [Concomitant]
  10. GLUCOSAMINE [Concomitant]

REACTIONS (4)
  - DEVICE DISLOCATION [None]
  - PUBIS FRACTURE [None]
  - MEDICATION ERROR [None]
  - INJECTION SITE PAIN [None]
